FAERS Safety Report 5843142-6 (Version None)
Quarter: 2008Q3

REPORT INFORMATION
  Report Type: 
  Country: None (occurrence: None)
  Receive Date: 20080813
  Receipt Date: 20080808
  Transmission Date: 20090109
  Serious: Yes (Death, Other)
  Sender: FDA-Public Use
  Company Number: US-BAYER-200830417NA

PATIENT
  Sex: Male

DRUGS (1)
  1. TRASYLOL [Suspect]
     Indication: DRUG USE FOR UNKNOWN INDICATION
     Dates: start: 20031028

REACTIONS (12)
  - ANHEDONIA [None]
  - ANXIETY [None]
  - DEATH [None]
  - FEAR [None]
  - ILL-DEFINED DISORDER [None]
  - INJURY [None]
  - MULTI-ORGAN FAILURE [None]
  - PAIN [None]
  - RENAL FAILURE [None]
  - RENAL IMPAIRMENT [None]
  - RENAL INJURY [None]
  - STRESS [None]
